FAERS Safety Report 11360934 (Version 1)
Quarter: 2015Q3

REPORT INFORMATION
  Report Type: Spontaneous
  Country: NL (occurrence: NL)
  Receive Date: 20150810
  Receipt Date: 20150810
  Transmission Date: 20151125
  Serious: Yes (Other)
  Sender: FDA-Public Use
  Company Number: NL-PFIZER INC-2015261338

PATIENT
  Age: 53 Year
  Sex: Female

DRUGS (5)
  1. PREGABALINE [Concomitant]
     Active Substance: PREGABALIN
     Dosage: 25 MG, UNK
  2. DEPO-PROVERA [Concomitant]
     Active Substance: MEDROXYPROGESTERONE ACETATE
     Dosage: 150 MG/ML, UNK
  3. CARBAMAZEPINE. [Concomitant]
     Active Substance: CARBAMAZEPINE
     Dosage: 200 MG, UNK
  4. ACETYLSALICYLZUUR [Concomitant]
     Dosage: 80 MG, UNK
  5. PANTOPRAZOLE [Suspect]
     Active Substance: PANTOPRAZOLE SODIUM
     Indication: PROPHYLAXIS AGAINST GASTROINTESTINAL ULCER
     Dosage: 20 MG, DAILY
     Route: 048
     Dates: start: 201406

REACTIONS (6)
  - Vertigo [Recovered/Resolved]
  - Strabismus [Recovered/Resolved]
  - Diplopia [Recovered/Resolved]
  - Deafness unilateral [Recovered/Resolved]
  - Balance disorder [Recovered/Resolved]
  - Headache [Recovered/Resolved]

NARRATIVE: CASE EVENT DATE: 20140604
